FAERS Safety Report 20449826 (Version 3)
Quarter: 2022Q3

REPORT INFORMATION
  Report Type: Spontaneous
  Country: US (occurrence: US)
  Receive Date: 20220209
  Receipt Date: 20220830
  Transmission Date: 20221026
  Serious: Yes (Other)
  Sender: FDA-Public Use
  Company Number: US-PFIZER INC-202200229234

PATIENT
  Age: 59 Year
  Sex: Female

DRUGS (29)
  1. PROTONIX [Suspect]
     Active Substance: PANTOPRAZOLE SODIUM
     Indication: Gastrooesophageal reflux disease
     Dosage: UNK
     Dates: start: 2007, end: 2018
  2. DEXILANT [Suspect]
     Active Substance: DEXLANSOPRAZOLE
     Indication: Gastrooesophageal reflux disease
     Dosage: UNK
     Dates: start: 2007, end: 2018
  3. DEXILANT [Suspect]
     Active Substance: DEXLANSOPRAZOLE
     Dosage: 60 MG, 1X/DAY
     Dates: start: 2009, end: 2018
  4. DEXLANSOPRAZOLE [Suspect]
     Active Substance: DEXLANSOPRAZOLE
     Indication: Gastrooesophageal reflux disease
     Dosage: 60 MG, 1X/DAY
     Dates: start: 2017
  5. ESOMEPRAZOLE [Suspect]
     Active Substance: ESOMEPRAZOLE
     Indication: Gastrooesophageal reflux disease
     Dosage: 40 MG, 1X/DAY
     Dates: start: 2017, end: 2018
  6. NEXIUM [Suspect]
     Active Substance: ESOMEPRAZOLE MAGNESIUM
     Indication: Gastrooesophageal reflux disease
     Dosage: 40 MG, 1X/DAY
     Dates: start: 2007, end: 2018
  7. NEXIUM 24HR [Suspect]
     Active Substance: ESOMEPRAZOLE MAGNESIUM
     Indication: Gastrooesophageal reflux disease
     Dosage: UNK, AS NEEDED
     Dates: start: 2014, end: 2018
  8. PRILOSEC [Suspect]
     Active Substance: OMEPRAZOLE MAGNESIUM
     Indication: Gastrooesophageal reflux disease
     Dosage: UNK
  9. OMEPRAZOLE [Suspect]
     Active Substance: OMEPRAZOLE
     Indication: Gastrooesophageal reflux disease
     Dosage: 40 MG, 1X/DAY
     Dates: start: 2012, end: 2013
  10. PANTOPRAZOLE [Suspect]
     Active Substance: PANTOPRAZOLE
     Indication: Gastrooesophageal reflux disease
     Dosage: 40 MG, 1X/DAY
     Dates: start: 2017, end: 2019
  11. LISINOPRIL [Concomitant]
     Active Substance: LISINOPRIL
     Indication: Blood pressure abnormal
     Dosage: UNK
     Dates: start: 2016, end: 2017
  12. FUROSEMIDE [Concomitant]
     Active Substance: FUROSEMIDE
     Indication: Fluid retention
     Dosage: UNK
     Dates: start: 2016, end: 2018
  13. SPIRONOLACTONE [Concomitant]
     Active Substance: SPIRONOLACTONE
     Indication: Fluid retention
     Dosage: UNK
     Dates: start: 2017
  14. CLOPIDOGREL [Concomitant]
     Active Substance: CLOPIDOGREL BISULFATE
     Indication: Cardiac disorder
     Dosage: UNK
     Dates: start: 2016, end: 2018
  15. ATORVASTATIN [Concomitant]
     Active Substance: ATORVASTATIN
     Indication: Blood cholesterol abnormal
     Dosage: UNK
     Dates: start: 2015, end: 2017
  16. SIMVASTATIN [Concomitant]
     Active Substance: SIMVASTATIN
     Indication: Blood cholesterol abnormal
     Dosage: UNK
     Dates: start: 2016, end: 2017
  17. AMOXICILLIN [Concomitant]
     Active Substance: AMOXICILLIN
     Indication: Infection
     Dosage: UNK
     Dates: start: 2006
  18. AMOXICILLIN [Concomitant]
     Active Substance: AMOXICILLIN
     Dosage: UNK
     Dates: start: 2014
  19. AMOXICILLIN [Concomitant]
     Active Substance: AMOXICILLIN
     Dosage: UNK
     Dates: start: 2015
  20. AMOXICILLIN [Concomitant]
     Active Substance: AMOXICILLIN
     Dosage: UNK
     Dates: start: 2016
  21. AMOXICILLIN [Concomitant]
     Active Substance: AMOXICILLIN
     Dosage: UNK
     Dates: start: 2017
  22. AZITHROMYCIN [Concomitant]
     Active Substance: AZITHROMYCIN
     Indication: Infection
     Dosage: UNK
     Dates: start: 2007
  23. AZITHROMYCIN [Concomitant]
     Active Substance: AZITHROMYCIN
     Dosage: UNK
     Dates: start: 2008
  24. AZITHROMYCIN [Concomitant]
     Active Substance: AZITHROMYCIN
     Dosage: UNK
     Dates: start: 2009
  25. AZITHROMYCIN [Concomitant]
     Active Substance: AZITHROMYCIN
     Dosage: UNK
     Dates: start: 2018
  26. TRAMADOL [Concomitant]
     Active Substance: TRAMADOL
     Indication: Pain
     Dosage: UNK
     Dates: start: 2004, end: 2015
  27. AMITRIPTYLINE [Concomitant]
     Active Substance: AMITRIPTYLINE
     Indication: Depression
     Dosage: UNK
     Dates: start: 2008
  28. RANITIDINE [Concomitant]
     Active Substance: RANITIDINE
     Dosage: UNK
     Dates: start: 2008, end: 2018
  29. ASPIRIN [Concomitant]
     Active Substance: ASPIRIN
     Dosage: UNK

REACTIONS (2)
  - Acute kidney injury [Unknown]
  - Chronic kidney disease [Unknown]

NARRATIVE: CASE EVENT DATE: 20170101
